FAERS Safety Report 5378317-6 (Version None)
Quarter: 2007Q3

REPORT INFORMATION
  Report Type: 
  Country: None (occurrence: None)
  Receive Date: 20070705
  Receipt Date: 20070627
  Transmission Date: 20080115
  Serious: Yes (Other)
  Sender: FDA-Public Use
  Company Number: US-NOVOPROD-265025

PATIENT
  Age: 21 Year
  Sex: Male

DRUGS (7)
  1. NOVOLOG [Suspect]
     Indication: BLOOD GLUCOSE INCREASED
     Dosage: UNKNOWN
     Route: 058
     Dates: start: 20070201, end: 20070201
  2. LANTUS [Suspect]
     Indication: BLOOD GLUCOSE INCREASED
     Route: 058
     Dates: start: 20070201
  3. HUMALOG [Suspect]
     Indication: BLOOD GLUCOSE INCREASED
     Dosage: UNKNOWN
     Route: 058
     Dates: start: 20070201, end: 20070201
  4. DEPAKENE                           /00228501/ [Concomitant]
     Indication: ILL-DEFINED DISORDER
  5. AMBIEN [Concomitant]
     Indication: ILL-DEFINED DISORDER
  6. CLONIDINE [Concomitant]
     Indication: ILL-DEFINED DISORDER
  7. PROZAC [Concomitant]
     Indication: ILL-DEFINED DISORDER

REACTIONS (4)
  - AGGRESSION [None]
  - AGITATION [None]
  - PSYCHOMOTOR HYPERACTIVITY [None]
  - TIC [None]
